FAERS Safety Report 5226518-X (Version None)
Quarter: 2007Q1

REPORT INFORMATION
  Report Type: 
  Country: None (occurrence: None)
  Receive Date: 20070201
  Receipt Date: 20070123
  Transmission Date: 20070707
  Serious: Yes (Hospitalization)
  Sender: FDA-Public Use
  Company Number: GB-PFIZER INC-2006155209

PATIENT
  Sex: Female
  Weight: 73.4 kg

DRUGS (9)
  1. SU-011,248 [Suspect]
     Indication: RENAL CELL CARCINOMA STAGE UNSPECIFIED
     Route: 048
  2. FENTANYL [Concomitant]
  3. ORAMORPH SR [Concomitant]
  4. SENOKOT [Concomitant]
  5. OMEPRAZOLE [Concomitant]
  6. DOMPERIDONE [Concomitant]
  7. AMLODIPINE [Concomitant]
  8. ATENOLOL [Concomitant]
  9. MEDROXYPROGESTERONE [Concomitant]

REACTIONS (1)
  - OBSTRUCTION [None]
